FAERS Safety Report 7347208-3 (Version None)
Quarter: 2011Q1

REPORT INFORMATION
  Report Type: 
  Country: None (occurrence: None)
  Receive Date: 20110311
  Receipt Date: 20110304
  Transmission Date: 20110831
  Serious: Yes (Hospitalization)
  Sender: FDA-Public Use
  Company Number: JP-PFIZER INC-2011047431

PATIENT
  Age: 68 Year
  Sex: Male

DRUGS (10)
  1. AMLODIPINE [Concomitant]
     Dosage: 5 MG, 1X/DAY
     Route: 048
  2. AZULFIDINE [Suspect]
     Indication: RHEUMATOID ARTHRITIS
     Dosage: 1000 MG, 1X/DAY
     Route: 048
     Dates: start: 20101217, end: 20110206
  3. PREDNISOLONE [Concomitant]
     Dosage: 2.5 MG, 1X/DAY
  4. DIOVAN [Concomitant]
     Dosage: 80 MG, 1X/DAY
     Route: 048
  5. BEHYD [Concomitant]
     Dosage: UNK
     Route: 048
  6. CLARITHROMYCIN [Concomitant]
     Dosage: 400 MG, 1X/DAY
     Route: 048
     Dates: start: 20110131
  7. ALMYLAR [Concomitant]
     Dosage: 50 MG, 1X/DAY
     Route: 048
  8. ASTOMIN [Concomitant]
     Dosage: 20 MG, 3X/DAY
     Route: 048
  9. TAKEPRON [Concomitant]
     Dosage: 15 MG, 1X/DAY
     Route: 048
  10. ACETAMINOPHEN [Concomitant]
     Dosage: 400 MG, 1X/DAY
     Route: 048

REACTIONS (3)
  - AGRANULOCYTOSIS [None]
  - PNEUMONIA BACTERIAL [None]
  - WHITE BLOOD CELL COUNT DECREASED [None]
